FAERS Safety Report 5598538-7 (Version None)
Quarter: 2008Q1

REPORT INFORMATION
  Report Type: 
  Country: None (occurrence: None)
  Receive Date: 20080122
  Receipt Date: 20070612
  Transmission Date: 20080703
  Serious: Yes (Hospitalization)
  Sender: FDA-Public Use
  Company Number: FR-BRISTOL-MYERS SQUIBB COMPANY-14044994

PATIENT
  Age: 41 Year
  Sex: Male

DRUGS (6)
  1. VASTEN TABS 20 MG [Suspect]
     Dosage: THERAPY DUR: 1 YEAR 10 MONTHS.
     Route: 048
     Dates: start: 20050601, end: 20070401
  2. SOLUPRED [Suspect]
     Indication: RENAL TRANSPLANT
     Route: 048
     Dates: start: 19980101
  3. RENITEC [Suspect]
     Route: 048
     Dates: end: 20070401
  4. AMLOR [Suspect]
     Route: 048
     Dates: end: 20070201
  5. NEORAL [Suspect]
     Indication: RENAL TRANSPLANT
     Dosage: DUR- 7YRS/1YR 11MON.STOPPED FRM 1-18MAY'07, AND REINTRODUCED WITH DOSE DECREASED TO 50MG/BID.
     Route: 048
     Dates: start: 19980101
  6. CELLCEPT [Suspect]
     Indication: RENAL TRANSPLANT
     Dosage: DURATION-1 YEAR 11 MONTHS.
     Route: 048
     Dates: start: 20050601, end: 20070520

REACTIONS (8)
  - CEREBELLAR SYNDROME [None]
  - CONVULSION [None]
  - DELIRIUM [None]
  - ENCEPHALOPATHY [None]
  - HYPOTENSION [None]
  - INDIFFERENCE [None]
  - MENINGITIS [None]
  - VISION BLURRED [None]
